FAERS Safety Report 11659690 (Version 6)
Quarter: 2017Q4

REPORT INFORMATION
  Report Type: Spontaneous
  Country: US (occurrence: US)
  Receive Date: 20151026
  Receipt Date: 20171102
  Transmission Date: 20180320
  Serious: Yes (Other)
  Sender: FDA-Public Use
  Company Number: US-PFIZER INC-2015033367

PATIENT
  Sex: Male

DRUGS (4)
  1. REVATIO [Suspect]
     Active Substance: SILDENAFIL CITRATE
     Indication: PROSTATOMEGALY
  2. REVATIO [Suspect]
     Active Substance: SILDENAFIL CITRATE
     Indication: CANCER SURGERY
     Dosage: UNK
  3. REVATIO [Suspect]
     Active Substance: SILDENAFIL CITRATE
     Indication: INFECTION PROPHYLAXIS
  4. REVATIO [Suspect]
     Active Substance: SILDENAFIL CITRATE
     Indication: RADIATION INJURY

REACTIONS (3)
  - Product use in unapproved indication [Unknown]
  - Immunodeficiency [Unknown]
  - Prostate infection [Unknown]
